FAERS Safety Report 5964479-6 (Version None)
Quarter: 2008Q4

REPORT INFORMATION
  Report Type: 
  Country: None (occurrence: None)
  Receive Date: 20081122
  Receipt Date: 20081122
  Transmission Date: 20090506
  Serious: Yes (Disabling)
  Sender: FDA-Public Use
  Company Number: None

PATIENT
  Sex: Female
  Weight: 72.5755 kg

DRUGS (1)
  1. NORVASC [Suspect]
     Indication: HYPERTENSION
     Dosage: 5MG QD PO FROM MID 90'S
     Route: 048
     Dates: end: 20070101

REACTIONS (5)
  - ATROPHY [None]
  - FATIGUE [None]
  - MUSCLE ATROPHY [None]
  - PAIN IN EXTREMITY [None]
  - RHABDOMYOLYSIS [None]
